FAERS Safety Report 5076830-2 (Version None)
Quarter: 2006Q3

REPORT INFORMATION
  Report Type: 
  Country: None (occurrence: None)
  Receive Date: 20060807
  Receipt Date: 20060726
  Transmission Date: 20061208
  Serious: Yes (Other)
  Sender: FDA-Public Use
  Company Number: 2006-07-2102

PATIENT
  Age: 46 Year
  Sex: Female

DRUGS (3)
  1. PEG-INTRON [Suspect]
     Indication: HEPATITIS C
     Dosage: SUBCUTANEOUS
     Route: 058
     Dates: start: 20060526
  2. REBETOL [Suspect]
     Indication: HEPATITIS C
     Dosage: ORAL
     Route: 048
     Dates: start: 20060526
  3. NORVASC [Concomitant]

REACTIONS (9)
  - ASTHENIA [None]
  - BLOOD PRESSURE INCREASED [None]
  - COUGH [None]
  - DEHYDRATION [None]
  - DIZZINESS [None]
  - FATIGUE [None]
  - HEADACHE [None]
  - INCREASED UPPER AIRWAY SECRETION [None]
  - PHARYNGOLARYNGEAL PAIN [None]
